FAERS Safety Report 13330494 (Version 1)
Quarter: 2017Q1

REPORT INFORMATION
  Report Type: Report from Study
  Country: NL (occurrence: NL)
  Receive Date: 20170313
  Receipt Date: 20170313
  Transmission Date: 20170428
  Serious: Yes (Other)
  Sender: FDA-Public Use
  Company Number: NL-MYLANLABS-2017M1015296

PATIENT

DRUGS (2)
  1. GENTAMICIN. [Interacting]
     Active Substance: GENTAMICIN
     Indication: PRODUCT USED FOR UNKNOWN INDICATION
     Route: 042
  2. CARBOPLATIN. [Suspect]
     Active Substance: CARBOPLATIN
     Indication: CONGENITAL RETINOBLASTOMA
     Dosage: TOTAL CUMULATIVE DOSE: 1805 MG/M2
     Route: 042

REACTIONS (2)
  - Deafness neurosensory [Unknown]
  - Drug interaction [Unknown]
